FAERS Safety Report 5811405-6 (Version None)
Quarter: 2008Q3

REPORT INFORMATION
  Report Type: 
  Country: None (occurrence: None)
  Receive Date: 20080708
  Receipt Date: 20080625
  Transmission Date: 20090109
  Serious: Yes (Hospitalization)
  Sender: FDA-Public Use
  Company Number: THYM-10549

PATIENT
  Age: 47 Year
  Sex: Female
  Weight: 59.9 kg

DRUGS (10)
  1. THYMOGLOBULIN [Suspect]
     Indication: LIVER TRANSPLANT
     Dosage: 1.5 MG/KG, QD, INTRAVENOUS
     Route: 042
     Dates: start: 20050412, end: 20050416
  2. RAPAMJNE (SIROLIMUS) [Concomitant]
  3. TACROLIMUS [Concomitant]
  4. PREDNISONE TAB [Concomitant]
  5. MYCOPHENOLATE MOFETIL [Concomitant]
  6. BACTRIM [Concomitant]
  7. NYSTATIN [Concomitant]
  8. VALCYTE [Concomitant]
  9. PREVACID [Concomitant]
  10. DARVON [Concomitant]

REACTIONS (5)
  - ALANINE AMINOTRANSFERASE INCREASED [None]
  - ASPARTATE AMINOTRANSFERASE INCREASED [None]
  - BLOOD ALKALINE PHOSPHATASE INCREASED [None]
  - BLOOD BILIRUBIN INCREASED [None]
  - LIVER FUNCTION TEST ABNORMAL [None]
